FAERS Safety Report 7492666-7 (Version None)
Quarter: 2011Q2

REPORT INFORMATION
  Report Type: 
  Country: None (occurrence: None)
  Receive Date: 20110519
  Receipt Date: 20110512
  Transmission Date: 20111010
  Serious: Yes (Other)
  Sender: FDA-Public Use
  Company Number: US-US-EMD SERONO, INC.-7049400

PATIENT
  Sex: Female

DRUGS (3)
  1. COPAXONE [Concomitant]
  2. STEROIDS [Suspect]
  3. REBIF [Suspect]
     Indication: PRODUCT USED FOR UNKNOWN INDICATION
     Route: 058
     Dates: start: 20110128

REACTIONS (9)
  - OROPHARYNGEAL PAIN [None]
  - COUGH [None]
  - HAEMATEMESIS [None]
  - EPISTAXIS [None]
  - INJECTION SITE ERYTHEMA [None]
  - SINUSITIS [None]
  - URTICARIA [None]
  - PRURITUS GENERALISED [None]
  - INJECTION SITE PAIN [None]
